FAERS Safety Report 12074575 (Version 2)
Quarter: 2016Q2

REPORT INFORMATION
  Report Type: Report from Study
  Country: BR (occurrence: BR)
  Receive Date: 20160212
  Receipt Date: 20160415
  Transmission Date: 20160815
  Serious: Yes (Life-Threatening, Hospitalization, Other)
  Sender: FDA-Public Use
  Company Number: BR-ALEXION PHARMACEUTICALS INC-A201600821

PATIENT
  Age: 28 Year
  Sex: Female

DRUGS (2)
  1. SOLIRIS [Suspect]
     Active Substance: ECULIZUMAB
     Dosage: 1200 MG, Q2W
     Route: 042
     Dates: start: 20140624
  2. SOLIRIS [Suspect]
     Active Substance: ECULIZUMAB
     Indication: HAEMOLYTIC URAEMIC SYNDROME
     Dosage: 900 MG, QW
     Route: 042
     Dates: start: 20140527

REACTIONS (8)
  - Blood pressure increased [Unknown]
  - Vomiting [Unknown]
  - Hyperthermia [Unknown]
  - Depressed level of consciousness [Unknown]
  - Meningitis cryptococcal [Recovering/Resolving]
  - Condition aggravated [Unknown]
  - Vertigo [Unknown]
  - Hypotension [Unknown]

NARRATIVE: CASE EVENT DATE: 20160104
